FAERS Safety Report 8995335 (Version 1)
Quarter: 2013Q1

REPORT INFORMATION
  Report Type: Report from Study
  Country: RU (occurrence: RU)
  Receive Date: 20130103
  Receipt Date: 20130103
  Transmission Date: 20140127
  Serious: Yes (Other)
  Sender: FDA-Public Use
  Company Number: RU-ROCHE-1174929

PATIENT
  Age: 53 Year
  Sex: Male
  Weight: 72 kg

DRUGS (5)
  1. BEVACIZUMAB [Suspect]
     Indication: RECTOSIGMOID CANCER
     Route: 065
     Dates: start: 20120511, end: 20121016
  2. 5-FLUOROURACIL [Concomitant]
     Indication: RECTOSIGMOID CANCER
     Route: 040
     Dates: start: 20120511
  3. 5-FLUOROURACIL [Concomitant]
     Route: 042
     Dates: end: 20121016
  4. LEUCOVORIN [Concomitant]
     Indication: RECTOSIGMOID CANCER
     Route: 042
     Dates: start: 20120511, end: 20121016
  5. OXALIPLATIN [Concomitant]
     Indication: RECTOSIGMOID CANCER
     Route: 042
     Dates: start: 20120511, end: 20121016

REACTIONS (2)
  - Anastomotic complication [Not Recovered/Not Resolved]
  - Muscle disorder [Recovered/Resolved]
